FAERS Safety Report 7562658-8 (Version None)
Quarter: 2011Q2

REPORT INFORMATION
  Report Type: 
  Country: None (occurrence: None)
  Receive Date: 20110622
  Receipt Date: 20110613
  Transmission Date: 20111010
  Serious: Yes (Hospitalization)
  Sender: FDA-Public Use
  Company Number: US-BRISTOL-MYERS SQUIBB COMPANY-14792402

PATIENT
  Age: 69 Year
  Sex: Male
  Weight: 106 kg

DRUGS (19)
  1. EPLERENONE [Concomitant]
     Route: 048
  2. OMEPRAZOLE [Concomitant]
     Route: 048
  3. CYCLOBENZAPRINE HCL [Concomitant]
     Indication: HYPOTONIA
     Route: 048
  4. DOCUSATE [Concomitant]
     Route: 048
  5. FLUNISOLIDE [Concomitant]
     Route: 045
  6. CITALOPRAM HYDROBROMIDE [Concomitant]
     Route: 048
  7. DILTIAZEM CD [Concomitant]
     Route: 048
  8. FUROSEMIDE [Concomitant]
  9. PRAVASTATINE TABS [Concomitant]
     Indication: BLOOD CHOLESTEROL
     Route: 048
  10. DIGOXIN [Concomitant]
     Route: 048
  11. POTASSIUM CHLORIDE [Concomitant]
  12. FORMOTEROL FUMARATE [Concomitant]
     Route: 048
  13. PLACEBO [Suspect]
     Indication: THROMBOSIS PROPHYLAXIS
     Route: 048
     Dates: start: 20090508
  14. INSULIN [Concomitant]
  15. LOSARTAN POTASSIUM [Concomitant]
     Route: 048
  16. METOLAZONE [Concomitant]
     Route: 048
  17. CAPSAICIN [Concomitant]
     Indication: ARTHRALGIA
     Route: 061
  18. WARFARIN SODIUM [Suspect]
     Indication: THROMBOSIS PROPHYLAXIS
     Dosage: INTERRUPTED ON 18SEP09
     Route: 048
     Dates: start: 20090508
  19. ASPIRIN [Concomitant]

REACTIONS (1)
  - CHRONIC OBSTRUCTIVE PULMONARY DISEASE [None]
